FAERS Safety Report 6987528-5 (Version None)
Quarter: 2010Q3

REPORT INFORMATION
  Report Type: 
  Country: None (occurrence: None)
  Receive Date: 20100916
  Receipt Date: 20100904
  Transmission Date: 20110219
  Serious: No
  Sender: FDA-Public Use
  Company Number: US-PFIZER INC-2010112042

PATIENT
  Sex: Female

DRUGS (1)
  1. LYRICA [Suspect]
     Indication: CENTRAL PAIN SYNDROME
     Dosage: 1200 MG, DAILY
     Route: 048
     Dates: start: 20080101

REACTIONS (2)
  - FLATULENCE [None]
  - INCORRECT DOSE ADMINISTERED [None]
